FAERS Safety Report 20501948 (Version 2)
Quarter: 2022Q3

REPORT INFORMATION
  Report Type: Report from Study
  Country: MX (occurrence: MX)
  Receive Date: 20220222
  Receipt Date: 20220803
  Transmission Date: 20221027
  Serious: Yes (Other)
  Sender: FDA-Public Use
  Company Number: MX-TAKEDA-2021TUS029990

PATIENT
  Age: 8 Year
  Sex: Male
  Weight: 29 kg

DRUGS (2)
  1. IDURSULFASE [Suspect]
     Active Substance: IDURSULFASE
     Indication: Mucopolysaccharidosis II
     Dosage: 2 DOSAGE FORM, 1/WEEK (6MG/3ML)
     Route: 042
     Dates: start: 20170315
  2. IDURSULFASE [Suspect]
     Active Substance: IDURSULFASE
     Dosage: 12 MILLIGRAM, 1/WEEK
     Route: 042

REACTIONS (10)
  - COVID-19 [Recovered/Resolved]
  - Therapy interrupted [Recovering/Resolving]
  - Incorrect dose administered [Unknown]
  - Product availability issue [Unknown]
  - Pyrexia [Recovered/Resolved]
  - Asthenia [Recovered/Resolved]
  - Nasopharyngitis [Recovered/Resolved]
  - Pharyngitis [Recovered/Resolved]
  - Decreased appetite [Recovered/Resolved]
  - Product dose omission issue [Recovering/Resolving]

NARRATIVE: CASE EVENT DATE: 20210505
